FAERS Safety Report 7267331-1 (Version None)
Quarter: 2011Q1

REPORT INFORMATION
  Report Type: 
  Country: None (occurrence: None)
  Receive Date: 20110201
  Receipt Date: 20100218
  Transmission Date: 20110831
  Serious: Yes (Other)
  Sender: FDA-Public Use
  Company Number: A0845713A

PATIENT
  Age: 44 Year
  Sex: Female
  Weight: 85 kg

DRUGS (8)
  1. ARIXTRA [Suspect]
     Indication: PROPHYLAXIS
     Dosage: 2.5MG SINGLE DOSE
     Route: 058
     Dates: start: 20100127, end: 20100127
  2. REGLAN [Concomitant]
     Indication: OSTEOPOROSIS
     Dosage: 10MG FOUR TIMES PER DAY
     Route: 048
     Dates: start: 20100126, end: 20100128
  3. MS CONTIN [Concomitant]
     Indication: PAIN
     Dosage: 15G TWICE PER DAY
     Route: 048
     Dates: start: 20100122, end: 20100202
  4. CYMBALTA [Concomitant]
     Indication: DEPRESSION
     Route: 048
     Dates: start: 20100122, end: 20100202
  5. COREG [Concomitant]
     Indication: HYPERTENSION
     Dosage: 6.025G TWICE PER DAY
     Route: 048
     Dates: start: 20100124, end: 20100202
  6. SENOKOT [Concomitant]
     Indication: CONSTIPATION
     Dosage: 17.2G TWICE PER DAY
     Route: 048
     Dates: start: 20100124, end: 20100202
  7. HYDRALAZINE [Concomitant]
     Route: 042
     Dates: start: 20100122, end: 20100202
  8. ZOFRAN [Concomitant]
     Dosage: 8MG AS REQUIRED
     Route: 042
     Dates: end: 20100202

REACTIONS (4)
  - ANAEMIA [None]
  - RENAL IMPAIRMENT [None]
  - HAEMORRHAGE [None]
  - RENAL HAEMORRHAGE [None]
